FAERS Safety Report 25161084 (Version 2)
Quarter: 2025Q2

REPORT INFORMATION
  Report Type: Spontaneous
  Country: US (occurrence: US)
  Receive Date: 20250404
  Receipt Date: 20250415
  Transmission Date: 20250716
  Serious: Yes (Hospitalization)
  Sender: BAYER
  Company Number: US-BAYER-2025A044337

PATIENT
  Age: 70 Year
  Sex: Female

DRUGS (1)
  1. MIRALAX [Suspect]
     Active Substance: POLYETHYLENE GLYCOL 3350
     Indication: Gastrointestinal disorder
     Route: 048

REACTIONS (4)
  - Oral discomfort [Recovered/Resolved]
  - Oral disorder [Recovered/Resolved]
  - Dehydration [Recovered/Resolved]
  - Drug ineffective [None]
